FAERS Safety Report 8059177-1 (Version None)
Quarter: 2012Q1

REPORT INFORMATION
  Report Type: 
  Country: None (occurrence: None)
  Receive Date: 20120120
  Receipt Date: 20120117
  Transmission Date: 20120608
  Serious: Yes (Hospitalization)
  Sender: FDA-Public Use
  Company Number: US-B.I. PHARMACEUTICALS,INC./RIDGEFIELD-2012-BP-00700BP

PATIENT
  Sex: Female

DRUGS (6)
  1. ESTRADERM [Concomitant]
     Route: 048
  2. SPIRIVA [Suspect]
     Indication: CHRONIC OBSTRUCTIVE PULMONARY DISEASE
     Dosage: 18 MCG
     Route: 055
     Dates: start: 20040101
  3. ZOCOR [Concomitant]
     Indication: BLOOD CHOLESTEROL INCREASED
     Route: 048
  4. POTASSIUM CHLORIDE [Concomitant]
     Route: 048
  5. ALBUTEROL [Concomitant]
     Indication: CHRONIC OBSTRUCTIVE PULMONARY DISEASE
     Route: 055
  6. LASIX [Concomitant]
     Route: 048

REACTIONS (6)
  - BACK PAIN [None]
  - SURGERY [None]
  - DRUG EFFECT DECREASED [None]
  - SHOULDER ARTHROPLASTY [None]
  - DYSPNOEA [None]
  - MUSCULOSKELETAL PAIN [None]
